FAERS Safety Report 12155346 (Version 1)
Quarter: 2016Q1

REPORT INFORMATION
  Report Type: Spontaneous
  Country: US (occurrence: US)
  Receive Date: 20160307
  Receipt Date: 20160307
  Transmission Date: 20160526
  Serious: Yes (Other)
  Sender: FDA-Public Use
  Company Number: US-CELGENEUS-USA-2016030968

PATIENT
  Sex: Female
  Weight: 62.65 kg

DRUGS (1)
  1. OTEZLA [Suspect]
     Active Substance: APREMILAST
     Indication: PRODUCT USED FOR UNKNOWN INDICATION
     Dosage: TITRATION PACK
     Route: 048
     Dates: start: 201602

REACTIONS (6)
  - Abdominal pain upper [Unknown]
  - Headache [Unknown]
  - Arthralgia [Unknown]
  - Weight decreased [Unknown]
  - Arthropathy [Unknown]
  - Diarrhoea [Unknown]
